FAERS Safety Report 14046570 (Version 4)
Quarter: 2020Q4

REPORT INFORMATION
  Report Type: Other
  Country: US (occurrence: US)
  Receive Date: 20171005
  Receipt Date: 20201214
  Transmission Date: 20210113
  Serious: Yes (Other)
  Sender: FDA-Public Use
  Company Number: US-ROCHE-2001431

PATIENT
  Sex: Female

DRUGS (5)
  1. CELLCEPT [Suspect]
     Active Substance: MYCOPHENOLATE MOFETIL\MYCOPHENOLATE MOFETIL HYDROCHLORIDE
     Indication: LUPUS NEPHRITIS
  2. CELLCEPT [Suspect]
     Active Substance: MYCOPHENOLATE MOFETIL\MYCOPHENOLATE MOFETIL HYDROCHLORIDE
     Indication: LUPUS NEPHRITIS
     Dosage: 3 TABLETS EVERY 12 HOURS
     Route: 048
  3. CELLCEPT [Suspect]
     Active Substance: MYCOPHENOLATE MOFETIL\MYCOPHENOLATE MOFETIL HYDROCHLORIDE
     Indication: SYSTEMIC LUPUS ERYTHEMATOSUS
  4. CELLCEPT [Suspect]
     Active Substance: MYCOPHENOLATE MOFETIL\MYCOPHENOLATE MOFETIL HYDROCHLORIDE
     Indication: CUTANEOUS LUPUS ERYTHEMATOSUS
     Route: 048
  5. CELLCEPT [Suspect]
     Active Substance: MYCOPHENOLATE MOFETIL\MYCOPHENOLATE MOFETIL HYDROCHLORIDE
     Indication: RAYNAUD^S PHENOMENON

REACTIONS (15)
  - Oral disorder [Unknown]
  - Off label use [Unknown]
  - Intentional product use issue [Unknown]
  - Red blood cell sedimentation rate increased [Unknown]
  - Constipation [Unknown]
  - Skin hyperpigmentation [Unknown]
  - Neoplasm [Unknown]
  - Pain in extremity [Unknown]
  - Skin hypertrophy [Unknown]
  - Scab [Unknown]
  - Proteinuria [Unknown]
  - Lupus nephritis [Unknown]
  - Ill-defined disorder [Unknown]
  - Skin hypopigmentation [Unknown]
  - Sclerodactylia [Unknown]
